FAERS Safety Report 14977475 (Version 1)
Quarter: 2018Q2

REPORT INFORMATION
  Report Type: Spontaneous
  Country: US (occurrence: US)
  Receive Date: 20180606
  Receipt Date: 20180606
  Transmission Date: 20180711
  Serious: Yes (Death, Other)
  Sender: FDA-Public Use
  Company Number: US-BRISTOL-MYERS SQUIBB COMPANY-BMS-2018-052018

PATIENT
  Sex: Female

DRUGS (2)
  1. OPDIVO [Suspect]
     Active Substance: NIVOLUMAB
     Indication: SARCOMA
     Dosage: 240 MG, Q2WK
     Route: 042
     Dates: start: 20180319, end: 20180417
  2. YERVOY [Suspect]
     Active Substance: IPILIMUMAB
     Indication: SARCOMA
     Dosage: 500 MG, Q6WK
     Route: 042
     Dates: start: 20180319, end: 20180417

REACTIONS (2)
  - Product use in unapproved indication [Unknown]
  - Death [Fatal]
